FAERS Safety Report 6970548-4 (Version None)
Quarter: 2010Q3

REPORT INFORMATION
  Report Type: 
  Country: None (occurrence: None)
  Receive Date: 20100824
  Receipt Date: 20100527
  Transmission Date: 20110219
  Serious: Yes (Other)
  Sender: FDA-Public Use
  Company Number: 2010067610

PATIENT
  Age: 56 Year
  Sex: Male
  Weight: 90 kg

DRUGS (4)
  1. AMLODIPINE BESYLATE [Suspect]
     Indication: HYPERTENSION
     Dosage: 10 MG, DAILY, ORAL
     Route: 048
     Dates: end: 20100501
  2. NORVASC [Suspect]
     Indication: HYPERTENSION
     Dosage: 10 MG, DAILY, ORAL
     Route: 048
  3. HYDROCHLOROTHIAZIDE [Concomitant]
  4. ENALAPRIL MALEATE [Concomitant]

REACTIONS (1)
  - VISION BLURRED [None]
